FAERS Safety Report 21191679 (Version 1)
Quarter: 2022Q3

REPORT INFORMATION
  Report Type: Spontaneous
  Country: US (occurrence: US)
  Receive Date: 20220809
  Receipt Date: 20220809
  Transmission Date: 20221026
  Serious: No
  Sender: FDA-Public Use
  Company Number: US-PHARMAAND-2022PHR00180

PATIENT
  Sex: Female

DRUGS (3)
  1. PEGASYS [Suspect]
     Active Substance: PEGINTERFERON ALFA-2A
     Indication: Thrombocytosis
     Dosage: 45 ?G
     Route: 058
     Dates: start: 202102, end: 2021
  2. PEGASYS [Suspect]
     Active Substance: PEGINTERFERON ALFA-2A
     Indication: Polycythaemia vera
     Dosage: 90 UNK
     Route: 058
     Dates: start: 2021
  3. HYDROXYUREA [Concomitant]
     Active Substance: HYDROXYUREA

REACTIONS (9)
  - Maternal exposure during pregnancy [Unknown]
  - Platelet count increased [Unknown]
  - Red blood cell count increased [Not Recovered/Not Resolved]
  - Ocular discomfort [Unknown]
  - Fluid retention [Unknown]
  - Fatigue [Not Recovered/Not Resolved]
  - Headache [Unknown]
  - Pain [Not Recovered/Not Resolved]
  - Off label use [Not Recovered/Not Resolved]
